FAERS Safety Report 5308432-4 (Version None)
Quarter: 2007Q2

REPORT INFORMATION
  Report Type: 
  Country: None (occurrence: None)
  Receive Date: 20070423
  Receipt Date: 20070423
  Transmission Date: 20071010
  Serious: Yes (Other)
  Sender: FDA-Public Use
  Company Number: None

PATIENT
  Age: 55 Year
  Sex: Male

DRUGS (1)
  1. AVELOX [Suspect]
     Indication: RESPIRATORY TRACT INFECTION
     Dosage: 400MG   ONE A DAY  PO
     Route: 048
     Dates: start: 20070109, end: 20070119

REACTIONS (3)
  - MYOGLOBINURIA [None]
  - MYOSITIS [None]
  - RHABDOMYOLYSIS [None]
